FAERS Safety Report 7217794-2 (Version None)
Quarter: 2010Q4

REPORT INFORMATION
  Report Type: 
  Country: None (occurrence: None)
  Receive Date: 20101230
  Receipt Date: 20101215
  Transmission Date: 20110411
  Serious: Yes (Hospitalization)
  Sender: FDA-Public Use
  Company Number: 024051

PATIENT
  Sex: Male

DRUGS (3)
  1. OMEPRAZOLE [Suspect]
     Indication: DYSPEPSIA
     Dosage: (20 MG ORAL)
     Route: 048
     Dates: start: 20100128, end: 20100929
  2. VANCOMYCIN [Suspect]
     Indication: PNEUMONIA
     Dosage: (INTRAVENOUS (NOT OTHERWISE SPECIFIED))
     Route: 042
     Dates: start: 20100818
  3. BLINDED TRIAL MEDICATION (INVESTIGATIONAL DRUG) [Suspect]
     Indication: CORONARY ARTERY DISEASE
     Dosage: (ORAL)
     Route: 048
     Dates: start: 20100127, end: 20100811

REACTIONS (3)
  - HYDROPNEUMOTHORAX [None]
  - PNEUMONIA [None]
  - RENAL FAILURE ACUTE [None]
